FAERS Safety Report 7510682-3 (Version None)
Quarter: 2011Q2

REPORT INFORMATION
  Report Type: 
  Country: None (occurrence: None)
  Receive Date: 20110530
  Receipt Date: 20110524
  Transmission Date: 20111010
  Serious: Yes (Hospitalization)
  Sender: FDA-Public Use
  Company Number: US-BRISTOL-MYERS SQUIBB COMPANY-15571367

PATIENT
  Age: 90 Year
  Sex: Male

DRUGS (15)
  1. MULTI-VITAMIN [Concomitant]
  2. AVODART [Concomitant]
  3. COUMADIN [Suspect]
     Indication: PULMONARY EMBOLISM
     Dosage: 1 DF:5 MG AND 7.5MG,5MG 6DAYS,7.5 ONE DAY,TABS,YEARS AGO
  4. POTASSIUM CHLORIDE [Concomitant]
  5. PROTONIX [Concomitant]
  6. OXYGEN [Concomitant]
  7. NORVASC [Concomitant]
  8. LEVOXYL [Concomitant]
  9. METOPROLOL TARTRATE [Concomitant]
  10. SPIRIVA [Concomitant]
  11. VITAMINS [Interacting]
  12. LIPITOR [Concomitant]
  13. METANX [Interacting]
  14. SYSTANE [Concomitant]
     Dosage: SYSTANE EYE GTH
  15. LASIX [Concomitant]

REACTIONS (3)
  - COLLAPSE OF LUNG [None]
  - INTERNATIONAL NORMALISED RATIO ABNORMAL [None]
  - DRUG INTERACTION [None]
